FAERS Safety Report 20085602 (Version 1)
Quarter: 2021Q4

REPORT INFORMATION
  Report Type: Spontaneous
  Country: US (occurrence: None)
  Receive Date: 20211117
  Receipt Date: 20211117
  Transmission Date: 20220303
  Serious: Yes (Hospitalization)
  Sender: FDA-Public Use
  Company Number: None

PATIENT
  Age: 16 Month
  Sex: Female
  Weight: 10.4 kg

DRUGS (11)
  1. ONCASPAR [Suspect]
     Active Substance: PEGASPARGASE
     Indication: Acute lymphocytic leukaemia
     Dosage: OTHER FREQUENCY : ONCE;?
     Route: 042
     Dates: start: 20211005, end: 20211005
  2. FAMOTIDINE [Concomitant]
     Active Substance: FAMOTIDINE
     Dates: start: 20211005, end: 20211005
  3. DIPHENHYDRAMINE [Concomitant]
     Active Substance: DIPHENHYDRAMINE
     Dates: start: 20211005, end: 20211005
  4. METHOTREXATE [Concomitant]
     Active Substance: METHOTREXATE
     Dates: start: 20211005, end: 20211005
  5. PROPOFOL [Concomitant]
     Active Substance: PROPOFOL
     Dates: start: 20211005, end: 20211005
  6. VINCRISTINE [Concomitant]
     Active Substance: VINCRISTINE
     Dates: start: 20211005, end: 20211005
  7. MIDAZOLAM [Concomitant]
     Active Substance: MIDAZOLAM
     Dates: start: 20211005, end: 20211005
  8. RIVAROXABAN [Concomitant]
     Active Substance: RIVAROXABAN
     Dates: start: 20210907
  9. CEPHALEXIN [Concomitant]
     Active Substance: CEPHALEXIN
     Dates: start: 20210922, end: 20211013
  10. AMLODIPINE [Concomitant]
     Active Substance: AMLODIPINE BESYLATE
     Dates: start: 20210823, end: 20210921
  11. GABAPENTIN [Concomitant]
     Active Substance: GABAPENTIN
     Dates: start: 20210823, end: 20210921

REACTIONS (3)
  - Pallor [None]
  - Lethargy [None]
  - Cyanosis [None]

NARRATIVE: CASE EVENT DATE: 20211005
